FAERS Safety Report 7986766-2 (Version None)
Quarter: 2011Q4

REPORT INFORMATION
  Report Type: 
  Country: None (occurrence: None)
  Receive Date: 20111216
  Receipt Date: 20110222
  Transmission Date: 20120403
  Serious: No
  Sender: FDA-Public Use
  Company Number: US-BRISTOL-MYERS SQUIBB COMPANY-15565229

PATIENT
  Age: 27 Year
  Sex: Female

DRUGS (5)
  1. ABILIFY [Suspect]
     Indication: BIPOLAR DISORDER
     Route: 048
     Dates: start: 20110218
  2. ADDERALL 5 [Concomitant]
  3. EFFEXOR [Concomitant]
  4. DEPO-PROVERA [Concomitant]
  5. METFORMIN HCL [Concomitant]

REACTIONS (1)
  - SEDATION [None]
